FAERS Safety Report 7388779-0 (Version None)
Quarter: 2011Q2

REPORT INFORMATION
  Report Type: 
  Country: None (occurrence: None)
  Receive Date: 20110401
  Receipt Date: 20110321
  Transmission Date: 20111010
  Serious: Yes (Hospitalization)
  Sender: FDA-Public Use
  Company Number: FR-SANOFI-AVENTIS-2011SA018033

PATIENT
  Age: 32 Year
  Sex: Female

DRUGS (3)
  1. ZECLAR [Suspect]
     Route: 048
     Dates: start: 20101210, end: 20101214
  2. KETEK [Suspect]
     Route: 048
     Dates: start: 20101214, end: 20101220
  3. ROCEPHIN [Suspect]
     Route: 042
     Dates: start: 20101210, end: 20101214

REACTIONS (1)
  - NEUTROPENIA [None]
